FAERS Safety Report 24566185 (Version 2)
Quarter: 2025Q1

REPORT INFORMATION
  Report Type: Report from Study
  Country: US (occurrence: US)
  Receive Date: 20241030
  Receipt Date: 20250130
  Transmission Date: 20250408
  Serious: Yes (Other)
  Sender: BAYER HEALTHCARE PHARMACEUTICALS INC.
  Company Number: US-BAYER-2024A106179

PATIENT
  Age: 72 Year
  Sex: Male

DRUGS (8)
  1. NUBEQA [Suspect]
     Active Substance: DAROLUTAMIDE
     Indication: Bone cancer
     Route: 048
  2. NUBEQA [Suspect]
     Active Substance: DAROLUTAMIDE
     Indication: Bone cancer
     Dosage: 300 MG, BID
     Route: 048
  3. NUBEQA [Suspect]
     Active Substance: DAROLUTAMIDE
     Indication: Bone cancer
     Dosage: 300 MG, BID
     Route: 048
  4. AMLODIPINE BESYLATE [Concomitant]
     Active Substance: AMLODIPINE BESYLATE
  5. FLUTICASONE [Concomitant]
     Active Substance: FLUTICASONE
  6. ORGOVYX [Concomitant]
     Active Substance: RELUGOLIX
  7. CALCIUM ACETATE [Concomitant]
     Active Substance: CALCIUM ACETATE
  8. ONDANSETRON [Concomitant]
     Active Substance: ONDANSETRON

REACTIONS (10)
  - Dialysis [Not Recovered/Not Resolved]
  - Pain [None]
  - Nausea [Recovered/Resolved]
  - Diarrhoea [Not Recovered/Not Resolved]
  - Constipation [Recovered/Resolved]
  - Nausea [Not Recovered/Not Resolved]
  - Constipation [Not Recovered/Not Resolved]
  - Fatigue [Recovered/Resolved]
  - Fatigue [Not Recovered/Not Resolved]
  - Off label use [None]
